FAERS Safety Report 9290015 (Version 1)
Quarter: 2013Q2

REPORT INFORMATION
  Report Type: Report from Study
  Country: CA (occurrence: CA)
  Receive Date: 20130515
  Receipt Date: 20130515
  Transmission Date: 20140414
  Serious: Yes (Hospitalization)
  Sender: FDA-Public Use
  Company Number: CA-JNJFOC-20130506208

PATIENT
  Age: 62 Year
  Sex: Male
  Weight: 88.3 kg

DRUGS (5)
  1. REMICADE [Suspect]
     Indication: COLITIS ULCERATIVE
     Dosage: 8 VIALS
     Route: 042
     Dates: start: 20100715
  2. CRESTOR [Concomitant]
     Route: 065
  3. IMURAN [Concomitant]
     Route: 065
  4. METOPROLOL [Concomitant]
     Route: 065
  5. ALTACE [Concomitant]
     Route: 065

REACTIONS (1)
  - Myocardial infarction [Not Recovered/Not Resolved]
